FAERS Safety Report 23273178 (Version 1)
Quarter: 2023Q4

REPORT INFORMATION
  Report Type: Report from Study
  Country: US (occurrence: US)
  Receive Date: 20231207
  Receipt Date: 20231207
  Transmission Date: 20240110
  Serious: Yes (Other)
  Sender: FDA-Public Use
  Company Number: US-ABBVIE-5526769

PATIENT
  Sex: Female

DRUGS (1)
  1. SKYRIZI [Suspect]
     Active Substance: RISANKIZUMAB-RZAA
     Indication: Psoriatic arthropathy
     Route: 058

REACTIONS (12)
  - Trigonitis [Unknown]
  - Intervertebral disc protrusion [Unknown]
  - Eye infection [Recovered/Resolved]
  - Uveitis [Unknown]
  - Peripheral swelling [Unknown]
  - Joint range of motion decreased [Unknown]
  - Ocular hyperaemia [Unknown]
  - Limb injury [Unknown]
  - Arthritis [Unknown]
  - Arthralgia [Not Recovered/Not Resolved]
  - Swelling of eyelid [Recovered/Resolved]
  - Swelling of eyelid [Unknown]

NARRATIVE: CASE EVENT DATE: 20231101
